FAERS Safety Report 6464608 (Version 3)
Quarter: 2019Q2

REPORT INFORMATION
  Report Type: Spontaneous
  Country: GB (occurrence: GB)
  Receive Date: 20071112
  Receipt Date: 20190516
  Transmission Date: 20190711
  Serious: Yes (Hospitalization, Other)
  Sender: FDA-Public Use
  Company Number: GB-PFIZER INC-2007092494

PATIENT
  Age: 14 Year
  Sex: Male

DRUGS (2)
  1. PHENYTOIN. [Suspect]
     Active Substance: PHENYTOIN
     Dosage: 200 MG, BID
     Route: 065
  2. PARACETAMOL [Interacting]
     Active Substance: ACETAMINOPHEN
     Indication: SUICIDE ATTEMPT
     Dosage: 45 MG, UNK
     Route: 065

REACTIONS (10)
  - Toxicity to various agents [Unknown]
  - Hepatic encephalopathy [Recovered/Resolved]
  - Abdominal pain upper [Unknown]
  - Intentional overdose [Recovered/Resolved]
  - Vomiting [Recovered/Resolved]
  - Loss of consciousness [Recovered/Resolved]
  - Liver function test abnormal [Recovered/Resolved]
  - Metabolic acidosis [Unknown]
  - Potentiating drug interaction [Recovered/Resolved]
  - Hepatic failure [Recovered/Resolved]
